FAERS Safety Report 6325978-0 (Version None)
Quarter: 2009Q3

REPORT INFORMATION
  Report Type: 
  Country: None (occurrence: None)
  Receive Date: 20090820
  Receipt Date: 20090810
  Transmission Date: 20100115
  Serious: Yes (Disabling)
  Sender: FDA-Public Use
  Company Number: FRP09000874

PATIENT
  Age: 66 Year
  Sex: Female

DRUGS (4)
  1. ACTONEL [Suspect]
     Indication: OSTEOPOROSIS
     Dosage: 3 MG, 1 /DAY
     Dates: start: 20070101, end: 20081201
  2. RAFTON  /01409501/(ALGINIC ACID, ALUMINIUM HYDROXIDE) [Suspect]
     Indication: DIARRHOEA
     Dosage: 3 MG. 1/DAY
     Dates: start: 20080701, end: 20081201
  3. ARIMIDEX [Suspect]
     Dosage: 1 TABLET, DAILY
     Dates: start: 20060101
  4. IDEOS /00944201/ (CALCIUM CARBONATE, COLECALCIFEROL) [Concomitant]

REACTIONS (2)
  - ARTHRALGIA [None]
  - OSTEONECROSIS [None]
